FAERS Safety Report 4781133-7 (Version None)
Quarter: 2005Q3

REPORT INFORMATION
  Report Type: 
  Country: None (occurrence: None)
  Receive Date: 20050926
  Receipt Date: 20050906
  Transmission Date: 20060218
  Serious: Yes (Death, Hospitalization)
  Sender: FDA-Public Use
  Company Number: 2005103109

PATIENT
  Age: 69 Year
  Sex: Male
  Weight: 84.5 kg

DRUGS (6)
  1. AZITHROMYCIN [Suspect]
     Indication: VIRAL INFECTION
     Dosage: 500 MG, ORAL
     Route: 048
     Dates: start: 20050705, end: 20050707
  2. SPIRIVA [Concomitant]
  3. ALLOPURINOL [Concomitant]
  4. HOKUNALIN (TULOBUTEROL HYDROCHLORIDE) [Concomitant]
  5. PYRETHIA (PROMETHAZINE HYDROCHLORIDE) [Concomitant]
  6. SILECE (FUNITRAZEPAM) [Concomitant]

REACTIONS (9)
  - BLOOD LACTATE DEHYDROGENASE INCREASED [None]
  - CARDIAC FAILURE ACUTE [None]
  - CONDITION AGGRAVATED [None]
  - DIARRHOEA [None]
  - EOSINOPHILIA [None]
  - FALL [None]
  - GENERAL PHYSICAL HEALTH DETERIORATION [None]
  - HAEMOLYTIC ANAEMIA [None]
  - RASH [None]
